FAERS Safety Report 8454115-1 (Version None)
Quarter: 2012Q2

REPORT INFORMATION
  Report Type: 
  Country: None (occurrence: None)
  Receive Date: 20120620
  Receipt Date: 20120619
  Transmission Date: 20120825
  Serious: No
  Sender: FDA-Public Use
  Company Number: US-PFIZER INC-2012056037

PATIENT
  Sex: Male
  Weight: 127 kg

DRUGS (15)
  1. CHANTIX [Suspect]
     Indication: SMOKING CESSATION THERAPY
     Dosage: UNK
     Route: 048
  2. ACETYLSALICYLIC ACID [Concomitant]
     Dosage: 80 MG, UNK
  3. FENOFIBRATE [Concomitant]
     Dosage: UNK
  4. CHANTIX [Suspect]
     Dosage: 0.5 MG, 1X/DAY
     Route: 048
     Dates: start: 20120501
  5. CHANTIX [Suspect]
     Dosage: UNK, 2X/DAY
     Dates: start: 20120101
  6. XANAX [Suspect]
     Dosage: UNK
  7. FLEXERIL [Concomitant]
     Dosage: UNK
  8. PROPRANOLOL [Concomitant]
     Dosage: UNK
  9. RAMIPRIL [Concomitant]
     Dosage: UNK
  10. OMEPRAZOLE [Concomitant]
     Dosage: UNK
  11. CHANTIX [Suspect]
     Dosage: UNK
     Route: 048
     Dates: start: 20120301, end: 20120101
  12. AMITRIPTYLINE [Concomitant]
     Dosage: UNK
  13. ACTOS [Concomitant]
     Dosage: UNK
  14. GLIMEPIRIDE [Concomitant]
     Dosage: UNK
  15. LORTAB [Concomitant]
     Dosage: UNK

REACTIONS (3)
  - IRRITABILITY [None]
  - ANXIETY [None]
  - CIRCUMSTANCE OR INFORMATION CAPABLE OF LEADING TO MEDICATION ERROR [None]
